FAERS Safety Report 4414233-1 (Version None)
Quarter: 2004Q3

REPORT INFORMATION
  Report Type: 
  Country: None (occurrence: None)
  Receive Date: 20040803
  Receipt Date: 20040726
  Transmission Date: 20050211
  Serious: Yes (Hospitalization, Other)
  Sender: FDA-Public Use
  Company Number: PHEH2004US08056

PATIENT
  Sex: Female

DRUGS (3)
  1. METHERGINE [Suspect]
     Dosage: .2 MG, UNK
     Route: 048
  2. TERBUTALINE SULFATE [Suspect]
     Indication: UTERINE CONTRACTIONS DURING PREGNANCY
     Dosage: .25 MG Q2-4H
     Route: 058
  3. TERBUTALINE SULFATE [Suspect]
     Dosage: 2.5 MG Q6H
     Route: 048

REACTIONS (4)
  - CAESAREAN SECTION [None]
  - DRUG EXPOSURE DURING PREGNANCY [None]
  - MEDICATION ERROR [None]
  - NORMAL NEWBORN [None]
